FAERS Safety Report 6293997-9 (Version None)
Quarter: 2009Q3

REPORT INFORMATION
  Report Type: 
  Country: None (occurrence: None)
  Receive Date: 20090803
  Receipt Date: 20080710
  Transmission Date: 20100115
  Serious: No
  Sender: FDA-Public Use
  Company Number: A0737098A

PATIENT
  Age: 53 Year
  Sex: Male

DRUGS (2)
  1. NICORETTE [Suspect]
     Dates: start: 20080701
  2. COMMIT [Suspect]

REACTIONS (2)
  - DRUG INEFFECTIVE [None]
  - NAUSEA [None]
